FAERS Safety Report 11364890 (Version 1)
Quarter: 2015Q3

REPORT INFORMATION
  Report Type: Spontaneous
  Country: ZA (occurrence: ZA)
  Receive Date: 20150811
  Receipt Date: 20150811
  Transmission Date: 20151125
  Serious: Yes (Disabling, Other)
  Sender: FDA-Public Use
  Company Number: ZA-PFIZER INC-2015265284

PATIENT
  Age: 73 Year
  Sex: Female

DRUGS (4)
  1. EXSIRA [Concomitant]
     Active Substance: DESVENLAFAXINE SUCCINATE
     Dosage: 50 MG, 1X/DAY
  2. MIRTAZAPINE. [Concomitant]
     Active Substance: MIRTAZAPINE
     Dosage: UNK, 1X/DAY (AT NIGHT)
  3. XANOR SR [Suspect]
     Active Substance: ALPRAZOLAM
     Dosage: 1 MG, 2X/DAY
  4. MIRTAZAPINE. [Concomitant]
     Active Substance: MIRTAZAPINE
     Dosage: INCREASED THE DOSE

REACTIONS (5)
  - Abasia [Unknown]
  - Drug prescribing error [Unknown]
  - Somnolence [Unknown]
  - Confusional state [Unknown]
  - Sedation [Unknown]
